FAERS Safety Report 17180380 (Version 1)
Quarter: 2019Q4

REPORT INFORMATION
  Report Type: Spontaneous
  Country: US (occurrence: US)
  Receive Date: 20191219
  Receipt Date: 20191219
  Transmission Date: 20200122
  Serious: No
  Sender: FDA-Public Use
  Company Number: US-UCBSA-103343

PATIENT
  Age: 31 Year
  Sex: Female

DRUGS (1)
  1. CIMZIA [Suspect]
     Active Substance: CERTOLIZUMAB PEGOL
     Indication: CROHN^S DISEASE
     Dosage: INSTEAD OF 400MG ONCE EVERY 4 WEEKS, PATIENT TOOK 200MG ONCE EVERY 2 WEEKS. EXPIRY DATE: ??-APR-2014
     Dates: start: 20121009

REACTIONS (1)
  - Muscle spasms [Not Recovered/Not Resolved]

NARRATIVE: CASE EVENT DATE: 20140520
